FAERS Safety Report 6915330-9 (Version None)
Quarter: 2010Q3

REPORT INFORMATION
  Report Type: 
  Country: None (occurrence: None)
  Receive Date: 20100806
  Receipt Date: 20100806
  Transmission Date: 20110219
  Serious: Yes (Other)
  Sender: FDA-Public Use
  Company Number: None

PATIENT
  Age: 70 Year
  Sex: Male
  Weight: 99.7913 kg

DRUGS (1)
  1. OXCARBAZEPINE [Suspect]
     Indication: NEURALGIA
     Dosage: 1 TAB BID PO
     Route: 048
     Dates: start: 20100715, end: 20100716

REACTIONS (2)
  - ERYTHEMA [None]
  - URTICARIA [None]
